FAERS Safety Report 8890897 (Version 1)
Quarter: 2012Q4

REPORT INFORMATION
  Report Type: 
  Country: JP (occurrence: JP)
  Receive Date: 20121107
  Receipt Date: 20121107
  Transmission Date: 20130627
  Serious: Yes (Life-Threatening)
  Sender: FDA-Public Use
  Company Number: JP-COVIDIEN/TYCO HEALTHCARE/MALLINCKRODT-T201203657

PATIENT
  Age: 68 Year
  Sex: Male
  Weight: 54 kg

DRUGS (2)
  1. OPTIRAY [Suspect]
     Indication: COMPUTERISED TOMOGRAM
     Dosage: 96 ml, single
     Route: 042
     Dates: start: 20121018, end: 20121018
  2. SODIUM CHLORIDE [Suspect]
     Indication: COMPUTERISED TOMOGRAM
     Dosage: 50 ml, qd
     Route: 042
     Dates: start: 20121018, end: 20121018

REACTIONS (6)
  - Hypotension [Recovered/Resolved]
  - Dizziness [None]
  - Cold sweat [None]
  - Erythema [None]
  - Urticaria [None]
  - Oxygen saturation decreased [None]
